FAERS Safety Report 4780969-6 (Version None)
Quarter: 2005Q3

REPORT INFORMATION
  Report Type: 
  Country: None (occurrence: None)
  Receive Date: 20050926
  Receipt Date: 20050926
  Transmission Date: 20060218
  Serious: Yes (Other)
  Sender: FDA-Public Use
  Company Number: None

PATIENT
  Age: 79 Year
  Sex: Male
  Weight: 67.1324 kg

DRUGS (3)
  1. FENTANYL [Suspect]
     Dosage: 250 MCG TO 300MCG  Q48H
  2. FENTANYL [Suspect]
     Indication: COMPLEX REGIONAL PAIN SYNDROME
  3. FENTANYL [Suspect]
     Indication: SPINAL LAMINECTOMY

REACTIONS (5)
  - ANXIETY [None]
  - DISORIENTATION [None]
  - HALLUCINATION, VISUAL [None]
  - PHARMACEUTICAL PRODUCT COMPLAINT [None]
  - THERAPEUTIC RESPONSE UNEXPECTED WITH DRUG SUBSTITUTION [None]
